FAERS Safety Report 7083611-7 (Version None)
Quarter: 2010Q4

REPORT INFORMATION
  Report Type: 
  Country: None (occurrence: None)
  Receive Date: 20101104
  Receipt Date: 20101104
  Transmission Date: 20110411
  Serious: Yes (Life-Threatening)
  Sender: FDA-Public Use
  Company Number: JP-ABBOTT-10P-087-0681531-00

PATIENT
  Age: 79 Year
  Sex: Female
  Weight: 40 kg

DRUGS (4)
  1. SEVOFLURANE [Suspect]
     Indication: MAINTENANCE OF ANAESTHESIA
     Route: 055
  2. PROPOFOL [Concomitant]
     Indication: INDUCTION OF ANAESTHESIA
  3. FENTANYL [Concomitant]
     Indication: MAINTENANCE OF ANAESTHESIA
  4. VECRONIUM [Concomitant]
     Indication: HYPOTONIA

REACTIONS (3)
  - BLOOD CREATINE PHOSPHOKINASE INCREASED [None]
  - HYPERTHERMIA MALIGNANT [None]
  - RHABDOMYOLYSIS [None]
